FAERS Safety Report 14711548 (Version 2)
Quarter: 2018Q2

REPORT INFORMATION
  Report Type: Spontaneous
  Country: IT (occurrence: IT)
  Receive Date: 20180403
  Receipt Date: 20180503
  Transmission Date: 20180711
  Serious: Yes (Other)
  Sender: FDA-Public Use
  Company Number: IT-MYLANLABS-2017M1072333

PATIENT
  Age: 62 Year
  Sex: Male

DRUGS (5)
  1. IMATINIB [Suspect]
     Active Substance: IMATINIB
     Dosage: 400 MG, QD
     Route: 065
     Dates: start: 200703, end: 201508
  2. IMATINIB [Suspect]
     Active Substance: IMATINIB
     Dosage: 400 MG, QD
     Route: 065
     Dates: end: 2016
  3. IMATINIB [Suspect]
     Active Substance: IMATINIB
     Dosage: STARTED AT A LOWER DOSE, THEN GRADUALLY INCREASED TO 400MG/DAY
     Route: 065
  4. NILOTINIB [Suspect]
     Active Substance: NILOTINIB
     Indication: PRODUCT USED FOR UNKNOWN INDICATION
     Dosage: UNK
  5. IMATINIB [Suspect]
     Active Substance: IMATINIB
     Indication: CHRONIC MYELOID LEUKAEMIA
     Dosage: UNK, LOWER DOSE AND THEN GRADUALLY INCREASED TO 400 MG A DAY
     Route: 065

REACTIONS (6)
  - Papilloedema [Recovered/Resolved]
  - Retinal oedema [Recovered/Resolved]
  - Pancreatitis acute [Recovered/Resolved]
  - Visual field defect [Recovered/Resolved]
  - Eye oedema [Unknown]
  - Eye pain [Recovered/Resolved]

NARRATIVE: CASE EVENT DATE: 201508
